FAERS Safety Report 8319986-8 (Version None)
Quarter: 2012Q2

REPORT INFORMATION
  Report Type: 
  Country: None (occurrence: None)
  Receive Date: 20120427
  Receipt Date: 20120417
  Transmission Date: 20120825
  Serious: Yes (Hospitalization)
  Sender: FDA-Public Use
  Company Number: NL-MEDIMMUNE-MEDI-0015475

PATIENT
  Sex: Male
  Weight: 7.79 kg

DRUGS (7)
  1. NITRAZEPAM [Concomitant]
  2. SYNAGIS [Suspect]
     Indication: HEART DISEASE CONGENITAL
     Route: 030
     Dates: start: 20111125, end: 20120326
  3. VIGABATRIN [Concomitant]
  4. SYNAGIS [Suspect]
     Route: 030
     Dates: start: 20120417, end: 20120417
  5. DOMPERIDONE [Concomitant]
  6. RANITIDINE HCL [Concomitant]
  7. MACROGOL 4000 [Concomitant]

REACTIONS (3)
  - FEELING ABNORMAL [None]
  - ABDOMINAL PAIN [None]
  - KIDNEY INFECTION [None]
